FAERS Safety Report 12771736 (Version 1)
Quarter: 2016Q3

REPORT INFORMATION
  Report Type: Spontaneous
  Country: JP (occurrence: JP)
  Receive Date: 20160922
  Receipt Date: 20160922
  Transmission Date: 20161109
  Serious: Yes (Other)
  Sender: FDA-Public Use
  Company Number: JP-BAYER-2016-174731

PATIENT
  Age: 66 Year
  Sex: Female

DRUGS (2)
  1. WARFARIN POTASSIUM [Interacting]
     Active Substance: WARFARIN POTASSIUM
     Dosage: UNK
     Route: 048
  2. ACETYLSALICYLIC ACID({=100 MG) [Suspect]
     Active Substance: ASPIRIN
     Dosage: UNK
     Route: 048

REACTIONS (5)
  - Drug administration error [None]
  - Spinal subarachnoid haemorrhage [None]
  - Paralysis [Not Recovered/Not Resolved]
  - Labelled drug-drug interaction medication error [None]
  - Coagulation time prolonged [None]
